FAERS Safety Report 6061037-2 (Version None)
Quarter: 2009Q1

REPORT INFORMATION
  Report Type: 
  Country: None (occurrence: None)
  Receive Date: 20090202
  Receipt Date: 20090127
  Transmission Date: 20090719
  Serious: Yes (Other)
  Sender: FDA-Public Use
  Company Number: US-JNJFOC-20090106910

PATIENT
  Age: 4 Week
  Sex: Female
  Weight: 4.08 kg

DRUGS (2)
  1. INFANTS MYLICON NON-STAINING FORMULA [Suspect]
     Indication: FLATULENCE
     Dosage: .4ML 7-8 TIMES DAILY
     Route: 048
  2. INFANTS FORMULA [Concomitant]
     Indication: NUTRITIONAL SUPPORT

REACTIONS (3)
  - HAEMATOCHEZIA [None]
  - INCORRECT DOSE ADMINISTERED [None]
  - PRODUCT QUALITY ISSUE [None]
